FAERS Safety Report 5767330-2 (Version None)
Quarter: 2008Q2

REPORT INFORMATION
  Report Type: 
  Country: None (occurrence: None)
  Receive Date: 20080612
  Receipt Date: 20080610
  Transmission Date: 20081010
  Serious: Yes (Death)
  Sender: FDA-Public Use
  Company Number: A0662594A

PATIENT
  Age: 52 Year
  Sex: Male

DRUGS (8)
  1. AVANDAMET [Suspect]
     Indication: DIABETES MELLITUS
     Route: 048
  2. AVANDIA [Suspect]
     Indication: DIABETES MELLITUS
     Dosage: 4MG TWICE PER DAY
     Route: 048
  3. GLUCOTROL XL [Concomitant]
     Dates: end: 20050101
  4. LIPITOR [Concomitant]
  5. UNIVASC [Concomitant]
  6. GLUCOPHAGE [Concomitant]
     Dates: end: 20050101
  7. HUMULIN R [Concomitant]
     Dates: start: 20050101
  8. METFORMIN HYDROCHLORIDE [Concomitant]

REACTIONS (5)
  - AREFLEXIA [None]
  - DEPRESSION [None]
  - DRUG DOSE OMISSION [None]
  - HYPERTENSION [None]
  - MYOCARDIAL INFARCTION [None]
